FAERS Safety Report 6824834-9 (Version None)
Quarter: 2010Q3

REPORT INFORMATION
  Report Type: 
  Country: None (occurrence: None)
  Receive Date: 20100708
  Receipt Date: 20070107
  Transmission Date: 20110219
  Serious: No
  Sender: FDA-Public Use
  Company Number: US-PFIZER INC-2007002885

PATIENT
  Sex: Female
  Weight: 64.41 kg

DRUGS (7)
  1. CHANTIX [Suspect]
     Indication: SMOKING CESSATION THERAPY
     Dates: start: 20061115
  2. CALCIUM/MINERALS/VITAMIN D [Concomitant]
     Dates: start: 20070103
  3. NAPROXEN [Concomitant]
  4. NIASPAN [Concomitant]
     Dates: start: 20060101
  5. CRESTOR [Concomitant]
  6. LEVOXYL [Concomitant]
  7. ZETIA [Concomitant]

REACTIONS (1)
  - SKIN BURNING SENSATION [None]
